FAERS Safety Report 17026967 (Version 3)
Quarter: 2020Q2

REPORT INFORMATION
  Report Type: Report from Study
  Country: US (occurrence: US)
  Receive Date: 20191113
  Receipt Date: 20200401
  Transmission Date: 20200713
  Serious: No
  Sender: FDA-Public Use
  Company Number: NVSC2019US034288

PATIENT
  Sex: Male

DRUGS (1)
  1. COSENTYX [Suspect]
     Active Substance: SECUKINUMAB
     Indication: PSORIASIS
     Dosage: 300 MG, QMO
     Route: 058
     Dates: start: 20181121

REACTIONS (11)
  - Pain in extremity [Not Recovered/Not Resolved]
  - Headache [Unknown]
  - Tinea pedis [Not Recovered/Not Resolved]
  - Acne [Not Recovered/Not Resolved]
  - Skin discolouration [Not Recovered/Not Resolved]
  - Pain [Not Recovered/Not Resolved]
  - Flatulence [Not Recovered/Not Resolved]
  - Skin disorder [Not Recovered/Not Resolved]
  - Ingrown hair [Not Recovered/Not Resolved]
  - Nail pitting [Not Recovered/Not Resolved]
  - Arthralgia [Not Recovered/Not Resolved]
